FAERS Safety Report 15419269 (Version 6)
Quarter: 2020Q2

REPORT INFORMATION
  Report Type: Spontaneous
  Country: US (occurrence: US)
  Receive Date: 20180924
  Receipt Date: 20200515
  Transmission Date: 20200713
  Serious: Yes (Hospitalization)
  Sender: FDA-Public Use
  Company Number: US-PFIZER INC-2018381253

PATIENT
  Age: 50 Year
  Sex: Male
  Weight: 93 kg

DRUGS (5)
  1. LYRICA [Suspect]
     Active Substance: PREGABALIN
     Indication: BACK PAIN
     Dosage: 100 MG, AS NEEDED (TAKE 1 CAPSULE ORAL THREE TIMES A DAY PRN (AS NEEDED)))
     Route: 048
  2. OXYCODONE [Concomitant]
     Active Substance: OXYCODONE
     Indication: SPINAL OPERATION
  3. OXYCODONE [Concomitant]
     Active Substance: OXYCODONE
     Indication: NECK SURGERY
     Dosage: 7.5 MG, AS NEEDED
     Route: 048
     Dates: start: 2013
  4. LYRICA [Suspect]
     Active Substance: PREGABALIN
     Dosage: 3 DF, DAILY
     Dates: start: 20160220
  5. LYRICA [Suspect]
     Active Substance: PREGABALIN
     Indication: NERVE INJURY
     Dosage: 100 MG, 3X/DAY
     Route: 048

REACTIONS (4)
  - Femur fracture [Unknown]
  - Limb discomfort [Recovered/Resolved]
  - Expired product administered [Unknown]
  - Limb injury [Unknown]

NARRATIVE: CASE EVENT DATE: 20180914
